FAERS Safety Report 21147550 (Version 2)
Quarter: 2022Q4

REPORT INFORMATION
  Report Type: Spontaneous
  Country: FR (occurrence: FR)
  Receive Date: 20220729
  Receipt Date: 20221215
  Transmission Date: 20230113
  Serious: Yes (Hospitalization, Other)
  Sender: FDA-Public Use
  Company Number: None

PATIENT

DRUGS (5)
  1. AUGMENTIN [Suspect]
     Active Substance: AMOXICILLIN\CLAVULANATE POTASSIUM
     Indication: Infection
     Dosage: UNK
     Route: 048
     Dates: start: 202205, end: 202205
  2. LAMOTRIGINE [Interacting]
     Active Substance: LAMOTRIGINE
     Indication: Bipolar disorder
     Dosage: 50 MG, QD
     Route: 048
     Dates: start: 20220428, end: 202206
  3. DEPAKOTE [Interacting]
     Active Substance: DIVALPROEX SODIUM
     Indication: Bipolar disorder
     Dosage: 2.5 G, QD (1G IN THE MORNING, 1.5 IN THE EVENING)
     Route: 048
  4. DIAZEPAM [Concomitant]
     Active Substance: DIAZEPAM
     Indication: Product used for unknown indication
     Dosage: UNK
     Route: 065
  5. CYAMEMAZINE [Concomitant]
     Active Substance: CYAMEMAZINE
     Indication: Product used for unknown indication
     Dosage: UNK
     Route: 065

REACTIONS (2)
  - Drug reaction with eosinophilia and systemic symptoms [Recovered/Resolved]
  - Drug interaction [Recovered/Resolved]

NARRATIVE: CASE EVENT DATE: 20220525
